FAERS Safety Report 8054460-8 (Version None)
Quarter: 2012Q1

REPORT INFORMATION
  Report Type: 
  Country: None (occurrence: None)
  Receive Date: 20120118
  Receipt Date: 20111229
  Transmission Date: 20120608
  Serious: No
  Sender: FDA-Public Use
  Company Number: BR-ASTRAZENECA-2012SE00045

PATIENT
  Age: 69 Year
  Sex: Female

DRUGS (4)
  1. ATACAND [Suspect]
     Route: 048
     Dates: start: 20110601
  2. SIMVASTATIN [Concomitant]
  3. ATACAND HCT [Suspect]
     Dosage: 16/12.5 MG
     Route: 048
     Dates: end: 20110601
  4. ASPIRIN [Concomitant]

REACTIONS (1)
  - URINE OUTPUT INCREASED [None]
